FAERS Safety Report 13664277 (Version 2)
Quarter: 2017Q3

REPORT INFORMATION
  Report Type: Spontaneous
  Country: US (occurrence: US)
  Receive Date: 20170619
  Receipt Date: 20170809
  Transmission Date: 20171127
  Serious: Yes (Other)
  Sender: FDA-Public Use
  Company Number: US-PFIZER INC-2017261142

PATIENT
  Age: 13 Year
  Sex: Male

DRUGS (13)
  1. VITAMIN B [Concomitant]
     Active Substance: VITAMIN B
     Indication: VITAMIN B COMPLEX DEFICIENCY
     Dosage: SHOT IN ARM EVERY TWO MONTHS
     Dates: start: 2012
  2. CLONAZEPAM. [Concomitant]
     Active Substance: CLONAZEPAM
     Indication: ANXIETY
     Dosage: UNK, AS NEEDED
  3. GABAPENTIN. [Suspect]
     Active Substance: GABAPENTIN
     Indication: HYPOAESTHESIA
     Dosage: 300 MG, UNK
     Dates: start: 201610
  4. GABAPENTIN. [Suspect]
     Active Substance: GABAPENTIN
     Dosage: 800 MG, UNK
     Dates: start: 201704
  5. PROPANOLOL [Concomitant]
     Active Substance: PROPRANOLOL HYDROCHLORIDE
     Indication: ANXIETY
     Dosage: UNK UNK, 2X/DAY (20MG, TABLETS, BY MOUTH, TWO TIMES A DAY)
     Route: 048
     Dates: start: 2011
  6. TRAMADOL HCL [Concomitant]
     Active Substance: TRAMADOL HYDROCHLORIDE
     Indication: PAIN
     Dosage: 50 MG, AS NEEDED (50MG, TABLETS, BY MOUTH, ONE TABLET EVERY 6 HOURS AS NEEDED)
     Route: 048
     Dates: start: 2017
  7. CETIRIZINE [Concomitant]
     Active Substance: CETIRIZINE HYDROCHLORIDE
     Indication: HYPERSENSITIVITY
     Dosage: 10 MG, 1X/DAY (10MG, TABLET, BY MOUTH, ONE IN THE MORNING)
     Route: 048
  8. VITAMIN D /00107901/ [Concomitant]
     Active Substance: ERGOCALCIFEROL
     Dosage: 5000 IU, 1X/DAY (IN THE MORNING)
     Route: 048
     Dates: start: 2015
  9. GABAPENTIN. [Suspect]
     Active Substance: GABAPENTIN
     Indication: BACK PAIN
     Dosage: 300 MG, 3X/DAY
     Route: 048
     Dates: start: 2005
  10. CARISOPRODOL. [Concomitant]
     Active Substance: CARISOPRODOL
     Indication: SLEEP DISORDER
  11. GABAPENTIN. [Suspect]
     Active Substance: GABAPENTIN
     Dosage: 600 MG, UNK
  12. CLONAZEPAM. [Concomitant]
     Active Substance: CLONAZEPAM
     Indication: SEIZURE
     Dosage: 2 MG, 2X/DAY
     Route: 048
     Dates: end: 201704
  13. CARISOPRODOL. [Concomitant]
     Active Substance: CARISOPRODOL
     Indication: MUSCLE SPASMS
     Dosage: AS NEEDED (350MG, TABLET, BY MOUTH, AS NEEDED)
     Route: 048
     Dates: start: 201703

REACTIONS (12)
  - Dysarthria [Unknown]
  - Seizure [Recovered/Resolved]
  - Malaise [Unknown]
  - Drug ineffective for unapproved indication [Unknown]
  - Discomfort [Unknown]
  - Nerve compression [Unknown]
  - Pain [Not Recovered/Not Resolved]
  - Stress [Unknown]
  - Insomnia [Unknown]
  - Sciatica [Unknown]
  - Nervousness [Unknown]
  - Condition aggravated [Unknown]

NARRATIVE: CASE EVENT DATE: 2005
